FAERS Safety Report 5332621-6 (Version None)
Quarter: 2007Q2

REPORT INFORMATION
  Report Type: 
  Country: None (occurrence: None)
  Receive Date: 20070523
  Receipt Date: 20070511
  Transmission Date: 20071010
  Serious: Yes (Hospitalization, Other)
  Sender: FDA-Public Use
  Company Number: GB-PFIZER INC-2007022405

PATIENT
  Age: 48 Year
  Sex: Female
  Weight: 70 kg

DRUGS (1)
  1. CHAMPIX [Suspect]
     Indication: EX-SMOKER
     Route: 048

REACTIONS (5)
  - ABDOMINAL PAIN LOWER [None]
  - ADENOMA BENIGN [None]
  - GASTROINTESTINAL OBSTRUCTION [None]
  - PNEUMOCOCCAL BACTERAEMIA [None]
  - PYREXIA [None]
